FAERS Safety Report 6465835-2 (Version None)
Quarter: 2009Q4

REPORT INFORMATION
  Report Type: 
  Country: None (occurrence: None)
  Receive Date: 20091127
  Receipt Date: 20091118
  Transmission Date: 20100525
  Serious: Yes (Other)
  Sender: FDA-Public Use
  Company Number: DSA_42053_2009

PATIENT
  Sex: Female

DRUGS (2)
  1. XENAZINE [Suspect]
     Indication: HUNTINGTON'S CHOREA
     Dosage: 12.5 MG QD, (25 MG TID);
     Dates: start: 20090606, end: 20090920
  2. XENAZINE [Suspect]
     Indication: HUNTINGTON'S CHOREA
     Dosage: 12.5 MG QD, (25 MG TID);
     Dates: start: 20090921, end: 20091029

REACTIONS (3)
  - AMNESIA [None]
  - DRUG INEFFECTIVE [None]
  - SOMNOLENCE [None]
